FAERS Safety Report 6693003-8 (Version None)
Quarter: 2010Q2

REPORT INFORMATION
  Report Type: 
  Country: None (occurrence: None)
  Receive Date: 20100422
  Receipt Date: 20100416
  Transmission Date: 20101027
  Serious: Yes (Death)
  Sender: FDA-Public Use
  Company Number: US-ALLERGAN-0917801US

PATIENT
  Age: 3 Year
  Sex: Male
  Weight: 12.3 kg

DRUGS (3)
  1. BOTOX [Suspect]
     Indication: MUSCLE SPASTICITY
     Dosage: 200 UNITS, UNK
     Route: 030
     Dates: start: 20070425, end: 20070425
  2. BOTOX [Suspect]
     Dosage: UNK
     Dates: start: 20070101, end: 20070101
  3. VERSED [Concomitant]
     Indication: SEDATION
     Dosage: 5 MG, SINGLE
     Route: 054
     Dates: start: 20070425, end: 20070425

REACTIONS (1)
  - DEATH [None]
